FAERS Safety Report 5241261-9 (Version None)
Quarter: 2007Q1

REPORT INFORMATION
  Report Type: 
  Country: None (occurrence: None)
  Receive Date: 20070212
  Receipt Date: 20070212
  Transmission Date: 20070707
  Serious: Yes (Other)
  Sender: FDA-Public Use
  Company Number: None

PATIENT
  Age: 24 Year
  Sex: Female
  Weight: 61.2356 kg

DRUGS (2)
  1. REGLAN [Suspect]
     Indication: GASTROOESOPHAGEAL REFLUX DISEASE
     Dosage: 10 MG 1 QD PO
     Route: 048
     Dates: start: 20061016, end: 20061128
  2. REGLAN [Suspect]
     Indication: IMPAIRED GASTRIC EMPTYING
     Dosage: 10 MG 1 QD PO
     Route: 048
     Dates: start: 20061016, end: 20061128

REACTIONS (4)
  - DEPRESSION [None]
  - IRRITABILITY [None]
  - MUSCLE TWITCHING [None]
  - TREMOR [None]
